FAERS Safety Report 10159119 (Version 2)
Quarter: 2014Q2

REPORT INFORMATION
  Report Type: Report from Study
  Country: CA (occurrence: CA)
  Receive Date: 20140508
  Receipt Date: 20140513
  Transmission Date: 20141212
  Serious: Yes (Other)
  Sender: FDA-Public Use
  Company Number: CA-ROCHE-1397564

PATIENT
  Age: 61 Year
  Sex: Male

DRUGS (7)
  1. RITUXAN [Suspect]
     Indication: RHEUMATOID ARTHRITIS
     Dosage: FREQUENCY: DAY 1 AND 15. LAST DOSE 10/JAN/2014.
     Route: 042
     Dates: start: 20080305
  2. DIPHENHYDRAMINE HCL [Concomitant]
     Indication: PREMEDICATION
     Route: 048
     Dates: start: 20090508
  3. ACETAMINOPHEN [Concomitant]
     Indication: PREMEDICATION
     Route: 048
     Dates: start: 20090508
  4. METHYLPREDNISOLONE [Concomitant]
     Indication: PREMEDICATION
     Route: 042
     Dates: start: 20090508
  5. ARTHROTEC [Concomitant]
  6. TRAMACET [Concomitant]
  7. ACLASTA [Concomitant]

REACTIONS (2)
  - Wrist fracture [Unknown]
  - Fall [Unknown]
